FAERS Safety Report 9984624 (Version 1)
Quarter: 2014Q1

REPORT INFORMATION
  Report Type: Spontaneous
  Country: US (occurrence: US)
  Receive Date: 20140307
  Receipt Date: 20140307
  Transmission Date: 20141002
  Serious: No
  Sender: FDA-Public Use
  Company Number: US-GLAXOSMITHKLINE-A1052060A

PATIENT
  Age: 83 Year
  Sex: Female

DRUGS (3)
  1. BREO ELLIPTA [Suspect]
     Indication: NASAL DISORDER
     Dosage: 1PUFF PER DAY
     Route: 055
     Dates: start: 20131128
  2. OXYGEN [Concomitant]
     Route: 055
  3. VERAMYST [Concomitant]

REACTIONS (9)
  - Headache [Unknown]
  - Cough [Unknown]
  - Nausea [Unknown]
  - Dysphonia [Unknown]
  - Aphonia [Unknown]
  - Hyperhidrosis [Unknown]
  - Poor quality sleep [Unknown]
  - General physical health deterioration [Unknown]
  - Communication disorder [Unknown]
